FAERS Safety Report 24356856 (Version 1)
Quarter: 2024Q3

REPORT INFORMATION
  Report Type: Spontaneous
  Country: JP (occurrence: JP)
  Receive Date: 20240924
  Receipt Date: 20240924
  Transmission Date: 20241017
  Serious: Yes (Hospitalization, Other)
  Sender: NOVARTIS
  Company Number: JP-002147023-NVSJ2024JP011111

PATIENT
  Sex: Female

DRUGS (4)
  1. CYCLOSPORINE [Suspect]
     Active Substance: CYCLOSPORINE
     Indication: Colitis ulcerative
     Dosage: UNK
     Route: 042
  2. PREDNISOLONE [Concomitant]
     Active Substance: PREDNISOLONE
     Indication: Colitis ulcerative
     Dosage: 30 MG
     Route: 065
  3. PREDNISOLONE [Concomitant]
     Active Substance: PREDNISOLONE
     Dosage: 50 MG
     Route: 065
  4. PREDNISOLONE [Concomitant]
     Active Substance: PREDNISOLONE
     Dosage: UNK
     Route: 065

REACTIONS (4)
  - Posterior reversible encephalopathy syndrome [Recovered/Resolved]
  - Visual impairment [Recovered/Resolved]
  - Blood pressure increased [Unknown]
  - Product use in unapproved indication [Unknown]
